FAERS Safety Report 10893571 (Version 1)
Quarter: 2015Q1

REPORT INFORMATION
  Report Type: Report from Study
  Country: US (occurrence: US)
  Receive Date: 20150306
  Receipt Date: 20150306
  Transmission Date: 20150721
  Serious: Yes (Hospitalization)
  Sender: FDA-Public Use
  Company Number: US-ABBVIE-15K-163-1354544-00

PATIENT
  Sex: Male
  Weight: 99.88 kg

DRUGS (15)
  1. VITAMIN D3 [Concomitant]
     Active Substance: CHOLECALCIFEROL
     Indication: VITAMIN SUPPLEMENTATION
  2. COZAAR [Concomitant]
     Active Substance: LOSARTAN POTASSIUM
     Indication: CARDIOVASCULAR EVENT PROPHYLAXIS
  3. HUMIRA [Suspect]
     Active Substance: ADALIMUMAB
     Indication: RHEUMATOID ARTHRITIS
     Route: 058
  4. ASPIRIN. [Concomitant]
     Active Substance: ASPIRIN
     Indication: CARDIOVASCULAR EVENT PROPHYLAXIS
  5. TRENTAL [Concomitant]
     Active Substance: PENTOXIFYLLINE
     Indication: CARDIOVASCULAR EVENT PROPHYLAXIS
  6. L-ARGININE [Concomitant]
     Active Substance: ARGININE
     Indication: PROPHYLAXIS
  7. FISH OIL [Concomitant]
     Active Substance: FISH OIL
     Indication: CARDIOVASCULAR EVENT PROPHYLAXIS
  8. ARIMIDEX [Concomitant]
     Active Substance: ANASTROZOLE
     Indication: PROPHYLAXIS
  9. HUMIRA [Suspect]
     Active Substance: ADALIMUMAB
     Indication: COLITIS ULCERATIVE
  10. ARIMIDEX [Concomitant]
     Active Substance: ANASTROZOLE
     Indication: BLOOD TESTOSTERONE DECREASED
  11. L-ARGININE [Concomitant]
     Active Substance: ARGININE
     Indication: VENOUS STENOSIS
  12. VITAMINS NOS [Concomitant]
     Active Substance: VITAMINS
     Indication: VITAMIN SUPPLEMENTATION
  13. VITAMIN B12 [Concomitant]
     Active Substance: CYANOCOBALAMIN
     Indication: VITAMIN SUPPLEMENTATION
  14. IRON [Concomitant]
     Active Substance: IRON
     Indication: VITAMIN SUPPLEMENTATION
  15. NALTREXONE [Concomitant]
     Active Substance: NALTREXONE
     Indication: RHEUMATOID ARTHRITIS

REACTIONS (9)
  - Coronary artery occlusion [Recovered/Resolved]
  - Colitis ulcerative [Not Recovered/Not Resolved]
  - Drug effect incomplete [Not Recovered/Not Resolved]
  - Coronary artery occlusion [Recovered/Resolved]
  - Angina pectoris [Recovered/Resolved]
  - Angina pectoris [Recovered/Resolved]
  - Coronary artery occlusion [Recovered/Resolved]
  - Angina pectoris [Recovered/Resolved]
  - Irritable bowel syndrome [Not Recovered/Not Resolved]

NARRATIVE: CASE EVENT DATE: 2003
